FAERS Safety Report 4700795-3 (Version None)
Quarter: 2005Q2

REPORT INFORMATION
  Report Type: 
  Country: None (occurrence: None)
  Receive Date: 20050624
  Receipt Date: 20050106
  Transmission Date: 20051028
  Serious: Yes (Hospitalization)
  Sender: FDA-Public Use
  Company Number: 391848

PATIENT
  Age: 70 Year
  Sex: Female
  Weight: 64.3 kg

DRUGS (1)
  1. XELODA [Suspect]
     Indication: BREAST CANCER
     Dosage: 1750 MG 2 PER DAY ORAL
     Route: 048
     Dates: start: 20040826

REACTIONS (2)
  - ABDOMINAL PAIN [None]
  - ILEITIS [None]
